FAERS Safety Report 12252065 (Version 2)
Quarter: 2016Q2

REPORT INFORMATION
  Report Type: Spontaneous
  Country: CA (occurrence: CA)
  Receive Date: 20160411
  Receipt Date: 20160428
  Transmission Date: 20160815
  Serious: Yes (Other)
  Sender: FDA-Public Use
  Company Number: CA-ROCHE-1739413

PATIENT
  Age: 57 Year
  Sex: Female

DRUGS (12)
  1. XOLAIR [Suspect]
     Active Substance: OMALIZUMAB
     Indication: ASTHMA
     Route: 058
     Dates: start: 20150505
  2. ADVAIR HFA [Concomitant]
     Active Substance: FLUTICASONE PROPIONATE\SALMETEROL XINAFOATE
  3. ALVESCO [Concomitant]
     Active Substance: CICLESONIDE
  4. SINGULAIR [Concomitant]
     Active Substance: MONTELUKAST SODIUM
  5. CALTRATE [Concomitant]
     Active Substance: CALCIUM CARBONATE
  6. XOLAIR [Suspect]
     Active Substance: OMALIZUMAB
     Route: 058
     Dates: start: 20160404
  7. XOLAIR [Suspect]
     Active Substance: OMALIZUMAB
     Route: 058
     Dates: start: 20160420
  8. VENTOLIN [Concomitant]
     Active Substance: ALBUTEROL SULFATE
  9. VITAMIN E [Concomitant]
     Active Substance: .ALPHA.-TOCOPHEROL
  10. APO-METOPROLOL [Concomitant]
     Active Substance: METOPROLOL
  11. OMNARIS [Concomitant]
     Active Substance: CICLESONIDE
  12. MONTELUKAST [Concomitant]
     Active Substance: MONTELUKAST SODIUM

REACTIONS (2)
  - Heart rate increased [Unknown]
  - Lower respiratory tract infection [Unknown]

NARRATIVE: CASE EVENT DATE: 20160330
